FAERS Safety Report 17558195 (Version 1)
Quarter: 2020Q1

REPORT INFORMATION
  Report Type: Spontaneous
  Country: US (occurrence: US)
  Receive Date: 20200318
  Receipt Date: 20200318
  Transmission Date: 20200409
  Serious: No
  Sender: FDA-Public Use
  Company Number: US-ENDO PHARMACEUTICALS INC-2019-108852

PATIENT
  Sex: Female
  Weight: 61.22 kg

DRUGS (3)
  1. XIAFLEX [Suspect]
     Active Substance: COLLAGENASE CLOSTRIDIUM HISTOLYTICUM
     Dosage: UNK UNKNOWN, UNKNOWN;12 INJECTIONS; 6 INJECTION RIGHT BUTT CHEEK, AND 6 ON THE LEFT BUTT CHEEK
     Route: 065
     Dates: start: 2018
  2. XIAFLEX [Suspect]
     Active Substance: COLLAGENASE CLOSTRIDIUM HISTOLYTICUM
     Dosage: UNK UNKNOWN, UNKNOWN;12 INJECTIONS; 6 INJECTION RIGHT BUTT CHEEK, AND 6 ON THE LEFT BUTT CHEEK
     Route: 065
     Dates: start: 2019
  3. XIAFLEX [Suspect]
     Active Substance: COLLAGENASE CLOSTRIDIUM HISTOLYTICUM
     Indication: DUPUYTREN^S CONTRACTURE
     Dosage: UNK UNKNOWN, UNKNOWN;12 INJECTIONS; 6 INJECTION RIGHT BUTT CHEEK, AND 6 ON THE LEFT BUTT CHEEK
     Route: 065
     Dates: start: 2018

REACTIONS (6)
  - Collagen disorder [Unknown]
  - Injection site pain [Recovering/Resolving]
  - Injection site bruising [Recovered/Resolved]
  - Off label use [Recovered/Resolved]
  - Injection site haematoma [Not Recovered/Not Resolved]
  - Injection site nodule [Not Recovered/Not Resolved]

NARRATIVE: CASE EVENT DATE: 2018
